FAERS Safety Report 9204245 (Version 1)
Quarter: 2013Q1

REPORT INFORMATION
  Report Type: Spontaneous
  Country: US (occurrence: None)
  Receive Date: 20120709
  Receipt Date: 20120709
  Transmission Date: 20140127
  Serious: No
  Sender: FDA-Public Use
  Company Number: 2012HGS-003459

PATIENT
  Age: 48 Year
  Sex: Female
  Weight: 85.28 kg

DRUGS (12)
  1. BENLYSTA [Suspect]
     Dosage: 1 IN 28 D
     Route: 041
     Dates: start: 20120103
  2. HYDROXYCHLORQUINE (HYDROXYCHLORQUINE SULFATE) (HYDROXYCHLORQUINE SULFATE) [Concomitant]
  3. ANTARA (FENOFIBRATE) (FENOFIBRATE) [Concomitant]
  4. SINGULAIR [Concomitant]
  5. CYMBALTA (DULOEXTINE HYDROCHLORIDE)(DULOEXTINE HYDROCHLORIDE) [Concomitant]
  6. CENTRUM (CENTRUM/01536001/) (ASCORBI ACID, TOCOPHERYL ACETATE, FLOCI ACID, COLECALCIFEROL, RETINOL, BETACAROTENE, MINERALS NOS, VITAMIN B NOS) [Concomitant]
  7. VITAMIN E (TOCOPHEROL) (TOCOPHEROL) [Concomitant]
  8. FISH OIL (FISH OIL) (FISH OIL) [Concomitant]
  9. POTASSIUM (POTASSIUM) (POTASSIUM) [Concomitant]
  10. SYNTHROID (LEVOTHYROXINE SODIUM) (LEVOTHYROXINE SODIUM) [Concomitant]
  11. FUROSEMIDE [Concomitant]
  12. CALCIUM (CALCIUM) (CALCIUM) [Concomitant]

REACTIONS (2)
  - Device related infection [None]
  - Rash [None]
